FAERS Safety Report 22084565 (Version 1)
Quarter: 2023Q1

REPORT INFORMATION
  Report Type: Spontaneous
  Country: US (occurrence: None)
  Receive Date: 20230309
  Receipt Date: 20230309
  Transmission Date: 20230417
  Serious: Yes (Hospitalization)
  Sender: FDA-Public Use
  Company Number: None

PATIENT
  Sex: Female

DRUGS (1)
  1. EPOPROSTENOL [Suspect]
     Active Substance: EPOPROSTENOL
     Indication: Pulmonary arterial hypertension
     Dosage: 18NG/KG/MIN CONTINUOUS IV
     Route: 042
     Dates: start: 202109

REACTIONS (4)
  - Hypervolaemia [None]
  - Weight increased [None]
  - Cough [None]
  - Hypokalaemia [None]
